FAERS Safety Report 25001513 (Version 2)
Quarter: 2025Q1

REPORT INFORMATION
  Report Type: Report from Study
  Country: US (occurrence: US)
  Receive Date: 20250223
  Receipt Date: 20250322
  Transmission Date: 20250409
  Serious: Yes (Other)
  Sender: ABBVIE
  Company Number: US-ABBVIE-6143621

PATIENT
  Sex: Male

DRUGS (12)
  1. VENCLEXTA [Suspect]
     Active Substance: VENETOCLAX
     Indication: Chronic lymphocytic leukaemia
     Route: 048
     Dates: start: 20240109
  2. VENCLEXTA [Suspect]
     Active Substance: VENETOCLAX
     Indication: Chronic lymphocytic leukaemia
     Route: 048
     Dates: start: 20240109
  3. VITAMIN B6 [Concomitant]
     Active Substance: PYRIDOXINE HYDROCHLORIDE
     Indication: Neuropathy peripheral
  4. COENZYME Q10 [Concomitant]
     Active Substance: DIETARY SUPPLEMENT\UBIDECARENONE
     Indication: Neuropathy peripheral
  5. VITAMIN B12 [Concomitant]
     Active Substance: CYANOCOBALAMIN
     Indication: Neuropathy peripheral
  6. VITAMIN C [Concomitant]
     Active Substance: ASCORBIC ACID
     Indication: Neuropathy peripheral
  7. FISH OIL\OMEGA-3 FATTY ACIDS [Concomitant]
     Active Substance: FISH OIL\OMEGA-3 FATTY ACIDS
     Indication: Neuropathy peripheral
  8. ZINC [Concomitant]
     Active Substance: ZINC
     Indication: Neuropathy peripheral
  9. MAGNESIUM GLUCONATE [Concomitant]
     Active Substance: MAGNESIUM GLUCONATE
     Indication: Neuropathy peripheral
  10. CAPSAICIN [Concomitant]
     Active Substance: CAPSAICIN
     Indication: Neuropathy peripheral
     Route: 061
  11. CALCIUM\VITAMIN D [Concomitant]
     Active Substance: CALCIUM\VITAMIN D
     Indication: Neuropathy peripheral
  12. HERBALS\TURMERIC [Concomitant]
     Active Substance: HERBALS\TURMERIC
     Indication: Product used for unknown indication

REACTIONS (6)
  - Haemoglobin abnormal [Unknown]
  - Abdominal pain [Unknown]
  - Platelet count decreased [Unknown]
  - Fatigue [Recovering/Resolving]
  - Bronchitis [Recovering/Resolving]
  - Neuropathy peripheral [Unknown]
